FAERS Safety Report 9506252 (Version 1)
Quarter: 2013Q1

REPORT INFORMATION
  Report Type: Spontaneous
  Country: US (occurrence: None)
  Receive Date: 20130305
  Receipt Date: 20130305
  Transmission Date: 20140127
  Serious: Yes (Hospitalization, Other)
  Sender: FDA-Public Use
  Company Number: 163-21880-12050177

PATIENT
  Age: 80 Year
  Sex: Male

DRUGS (6)
  1. REVLIMID [Suspect]
     Indication: MYELODYSPLASTIC SYNDROME
     Route: 048
     Dates: start: 201204
  2. GLIPIZIDE (GLIPIZIDE) [Concomitant]
  3. FINASTERIDE (FINASTRIDE) [Concomitant]
  4. FUROSEMIDE (FUROSEMIDE) [Concomitant]
  5. COUMADIN (WARFARIN SODIUM) [Concomitant]
  6. POTASSIUM GLUCONATE (POTASSIUM GLUCONATE) [Concomitant]

REACTIONS (5)
  - Tremor [None]
  - Dyspnoea [None]
  - Pyrexia [None]
  - Asthenia [None]
  - Red blood cell count decreased [None]
